FAERS Safety Report 4723959-1 (Version None)
Quarter: 2005Q3

REPORT INFORMATION
  Report Type: 
  Country: None (occurrence: None)
  Receive Date: 20050721
  Receipt Date: 20050712
  Transmission Date: 20060218
  Serious: Yes (Other)
  Sender: FDA-Public Use
  Company Number: 2005100029

PATIENT
  Age: 79 Year
  Sex: Female
  Weight: 76.6579 kg

DRUGS (7)
  1. LIPITOR [Suspect]
     Indication: BLOOD CHOLESTEROL INCREASED
     Dosage: 20 MG
  2. MACUGEN [Suspect]
     Indication: MACULAR DEGENERATION
     Dosage: UNKNOWN (1 IN 6 WK);
     Dates: start: 20050101
  3. ATENOLOL [Concomitant]
  4. ALTACE [Concomitant]
  5. ASCORBIC ACID [Concomitant]
  6. ALL OTHER THERAPEUTIC PRODUCTS [Concomitant]
  7. VITAMIN B COMPLEX CAP [Concomitant]

REACTIONS (4)
  - CONDITION AGGRAVATED [None]
  - IRRITABLE BOWEL SYNDROME [None]
  - LOW DENSITY LIPOPROTEIN INCREASED [None]
  - MACULAR DEGENERATION [None]
